FAERS Safety Report 5212752-1 (Version None)
Quarter: 2006Q4

REPORT INFORMATION
  Report Type: 
  Country: None (occurrence: None)
  Receive Date: 20061115
  Receipt Date: 20060811
  Transmission Date: 20070319
  Serious: No
  Sender: FDA-Public Use
  Company Number: 200610852BWH

PATIENT
  Age: 56 Year
  Sex: Male
  Weight: 127.0072 kg

DRUGS (12)
  1. NEXAVAR [Suspect]
     Indication: RENAL CELL CARCINOMA STAGE UNSPECIFIED
     Dosage: 400 MG, BID; ORAL
     Route: 048
     Dates: start: 20060126
  2. HYTRIN [Concomitant]
  3. METOPROLOL TARTRATE [Concomitant]
  4. SYNTHROID [Concomitant]
  5. PREVACID [Concomitant]
  6. ASPIRIN [Concomitant]
  7. INTERFERON [Concomitant]
  8. INTERLEUKIN [Concomitant]
  9. PRAVACHOL [Concomitant]
  10. VITAMIN E [Concomitant]
  11. OMEGA FISH OIL [Concomitant]
  12. SAW PALMETTO [Concomitant]

REACTIONS (8)
  - ABDOMINAL DISTENSION [None]
  - ABDOMINAL PAIN UPPER [None]
  - BLISTER [None]
  - CONSTIPATION [None]
  - DIARRHOEA [None]
  - DRY SKIN [None]
  - PRURITUS [None]
  - SUNBURN [None]
